FAERS Safety Report 5598711-8 (Version None)
Quarter: 2008Q1

REPORT INFORMATION
  Report Type: 
  Country: None (occurrence: None)
  Receive Date: 20080122
  Receipt Date: 20080103
  Transmission Date: 20080703
  Serious: Yes (Congenital Anomaly)
  Sender: FDA-Public Use
  Company Number: MY-ELI_LILLY_AND_COMPANY-MY200801002180

PATIENT

DRUGS (2)
  1. OLANZAPINE [Suspect]
     Indication: SCHIZOPHRENIA
     Dosage: 5 MG, DAILY (1/D)
     Route: 064
     Dates: start: 20070101, end: 20070101
  2. OLANZAPINE [Suspect]
     Dosage: 2.5 MG, DAILY (1/D)
     Route: 064
     Dates: end: 20071120

REACTIONS (3)
  - ANOTIA [None]
  - DRUG EXPOSURE DURING PREGNANCY [None]
  - HYPOSPADIAS [None]
